FAERS Safety Report 7686887 (Version 4)
Quarter: 2012Q4

REPORT INFORMATION
  Report Type: Report from Study
  Country: US (occurrence: US)
  Receive Date: 20101130
  Receipt Date: 20121030
  Transmission Date: 20130627
  Serious: Yes (Hospitalization)
  Sender: FDA-Public Use
  Company Number: US-JNJFOC-20101108459

PATIENT
  Age: 11 Year
  Sex: Male
  Weight: 32.1 kg

DRUGS (2)
  1. REMICADE [Suspect]
     Indication: CROHN^S DISEASE
     Route: 042
     Dates: start: 20081124, end: 20091012
  2. HUMIRA [Concomitant]
     Dates: start: 20091201

REACTIONS (2)
  - Anal fistula [Recovered/Resolved]
  - Crohn^s disease [Recovered/Resolved]
